FAERS Safety Report 19143824 (Version 1)
Quarter: 2021Q2

REPORT INFORMATION
  Report Type: Spontaneous
  Country: US (occurrence: US)
  Receive Date: 20210415
  Receipt Date: 20210415
  Transmission Date: 20210717
  Serious: No
  Sender: FDA-Public Use
  Company Number: US-JNJFOC-20210410735

PATIENT
  Age: 55 Year
  Sex: Female

DRUGS (24)
  1. PEPCID [Suspect]
     Active Substance: FAMOTIDINE
     Indication: CHEST DISCOMFORT
  2. PEPCID [Suspect]
     Active Substance: FAMOTIDINE
     Indication: DYSPNOEA
  3. BENADRYL [Suspect]
     Active Substance: DIPHENHYDRAMINE HYDROCHLORIDE
     Indication: DYSPHONIA
  4. PEPCID [Suspect]
     Active Substance: FAMOTIDINE
     Indication: RASH
  5. PEPCID [Suspect]
     Active Substance: FAMOTIDINE
     Indication: HEADACHE
  6. PEPCID [Suspect]
     Active Substance: FAMOTIDINE
     Indication: PRURITUS
  7. PEPCID [Suspect]
     Active Substance: FAMOTIDINE
     Indication: RESPIRATORY DISTRESS
  8. EPINEPHRINE. [Concomitant]
     Active Substance: EPINEPHRINE
     Indication: PRODUCT USED FOR UNKNOWN INDICATION
     Route: 065
  9. ZYRTEC [Concomitant]
     Active Substance: CETIRIZINE HYDROCHLORIDE
     Indication: PRODUCT USED FOR UNKNOWN INDICATION
     Route: 065
  10. BENADRYL [Suspect]
     Active Substance: DIPHENHYDRAMINE HYDROCHLORIDE
     Indication: DIZZINESS
     Route: 065
     Dates: start: 202103
  11. BENADRYL [Suspect]
     Active Substance: DIPHENHYDRAMINE HYDROCHLORIDE
     Indication: RASH
  12. HUMALOG [Concomitant]
     Active Substance: INSULIN LISPRO
     Indication: PRODUCT USED FOR UNKNOWN INDICATION
     Route: 065
  13. PRAVASTATIN. [Concomitant]
     Active Substance: PRAVASTATIN
     Indication: PRODUCT USED FOR UNKNOWN INDICATION
     Route: 065
  14. PEPCID [Suspect]
     Active Substance: FAMOTIDINE
     Indication: DIZZINESS
     Route: 065
     Dates: start: 202103
  15. PEPCID [Suspect]
     Active Substance: FAMOTIDINE
     Indication: COUGH
  16. PREDNISONE. [Concomitant]
     Active Substance: PREDNISONE
     Indication: PRODUCT USED FOR UNKNOWN INDICATION
     Route: 065
  17. BENADRYL [Suspect]
     Active Substance: DIPHENHYDRAMINE HYDROCHLORIDE
     Indication: CHEST DISCOMFORT
  18. PEPCID [Suspect]
     Active Substance: FAMOTIDINE
     Indication: DYSPHONIA
  19. BENADRYL [Suspect]
     Active Substance: DIPHENHYDRAMINE HYDROCHLORIDE
     Indication: COUGH
  20. BENADRYL [Suspect]
     Active Substance: DIPHENHYDRAMINE HYDROCHLORIDE
     Indication: DYSPNOEA
  21. BENADRYL [Suspect]
     Active Substance: DIPHENHYDRAMINE HYDROCHLORIDE
     Indication: PRURITUS
  22. BENADRYL [Suspect]
     Active Substance: DIPHENHYDRAMINE HYDROCHLORIDE
     Indication: HEADACHE
  23. BENADRYL [Suspect]
     Active Substance: DIPHENHYDRAMINE HYDROCHLORIDE
     Indication: RESPIRATORY DISTRESS
  24. COVID?19 VACCINE NOS. [Concomitant]
     Active Substance: COVID-19 VACCINE NOS
     Indication: IMMUNISATION
     Route: 065
     Dates: start: 20210324

REACTIONS (2)
  - Off label use [Unknown]
  - Product use in unapproved indication [Unknown]

NARRATIVE: CASE EVENT DATE: 202103
